FAERS Safety Report 8445489-6 (Version None)
Quarter: 2012Q2

REPORT INFORMATION
  Report Type: 
  Country: None (occurrence: None)
  Receive Date: 20120618
  Receipt Date: 20120611
  Transmission Date: 20120825
  Serious: Yes (Other)
  Sender: FDA-Public Use
  Company Number: GB-JNJFOC-20120110732

PATIENT
  Sex: Female

DRUGS (1)
  1. NICORETTE [Suspect]
     Indication: SMOKING CESSATION THERAPY
     Dosage: AS REQUIRED
     Route: 047

REACTIONS (8)
  - DRY EYE [None]
  - LACRIMAL DISORDER [None]
  - EYE BURNS [None]
  - EYE PAIN [None]
  - PRODUCT QUALITY ISSUE [None]
  - EYE IRRITATION [None]
  - EMOTIONAL DISTRESS [None]
  - ACCIDENTAL EXPOSURE [None]
